FAERS Safety Report 5754215-0 (Version None)
Quarter: 2008Q2

REPORT INFORMATION
  Report Type: 
  Country: None (occurrence: None)
  Receive Date: 20080527
  Receipt Date: 20080509
  Transmission Date: 20081010
  Serious: No
  Sender: FDA-Public Use
  Company Number: B0371947A

PATIENT
  Age: 43 Year
  Sex: Male
  Weight: 66.8602 kg

DRUGS (1)
  1. LAMICTAL [Suspect]
     Indication: EPILEPSY
     Dosage: 100 MG/ PER DAY / ORAL
     Route: 048
     Dates: start: 20040101, end: 20040117

REACTIONS (1)
  - PSYCHOTIC DISORDER [None]
